FAERS Safety Report 9857188 (Version 3)
Quarter: 2014Q1

REPORT INFORMATION
  Report Type: Spontaneous
  Country: BR (occurrence: BR)
  Receive Date: 20140130
  Receipt Date: 20140211
  Transmission Date: 20141002
  Serious: No
  Sender: FDA-Public Use
  Company Number: BR-ABBVIE-13P-020-1176658-00

PATIENT
  Sex: Female

DRUGS (1)
  1. HUMIRA [Suspect]
     Indication: RHEUMATOID ARTHRITIS

REACTIONS (4)
  - Gait disturbance [Unknown]
  - Arthropathy [Recovering/Resolving]
  - Sensory disturbance [Unknown]
  - Joint stiffness [Unknown]
